FAERS Safety Report 7540397-7 (Version None)
Quarter: 2011Q2

REPORT INFORMATION
  Report Type: 
  Country: None (occurrence: None)
  Receive Date: 20110603
  Receipt Date: 20110518
  Transmission Date: 20111010
  Serious: Yes (Hospitalization)
  Sender: FDA-Public Use
  Company Number: 2011MA006141

PATIENT
  Age: 32 Year
  Sex: Female

DRUGS (1)
  1. IPRATROPIUM BROMIDE INHALATION SOLUTION, 0.02% (ALPHARM) [Suspect]
     Indication: RESPIRATORY DISTRESS
     Dosage: Q4

REACTIONS (9)
  - HEMIPARESIS [None]
  - CEREBRAL HAEMORRHAGE [None]
  - RESPIRATORY DISTRESS [None]
  - CEREBRAL HAEMATOMA [None]
  - MYDRIASIS [None]
  - HEADACHE [None]
  - MOYAMOYA DISEASE [None]
  - PUPILS UNEQUAL [None]
  - APHASIA [None]
